FAERS Safety Report 5019385-0 (Version None)
Quarter: 2006Q2

REPORT INFORMATION
  Report Type: 
  Country: None (occurrence: None)
  Receive Date: 20060530
  Receipt Date: 20060519
  Transmission Date: 20061013
  Serious: Yes (Other)
  Sender: FDA-Public Use
  Company Number: 200610656BYL

PATIENT
  Age: 38 Year
  Sex: Male

DRUGS (4)
  1. AVELOX [Suspect]
     Indication: BRONCHITIS ACUTE
     Dosage: 400 MG, QD, ORAL
     Route: 048
     Dates: start: 20060510, end: 20060511
  2. PELEX [Concomitant]
  3. DASEN [Concomitant]
  4. LOXONIN [Concomitant]

REACTIONS (1)
  - RHABDOMYOLYSIS [None]
